FAERS Safety Report 8008747-5 (Version None)
Quarter: 2011Q4

REPORT INFORMATION
  Report Type: 
  Country: None (occurrence: None)
  Receive Date: 20111227
  Receipt Date: 20111221
  Transmission Date: 20120403
  Serious: Yes (Death, Hospitalization, Other)
  Sender: FDA-Public Use
  Company Number: ES-BAYER-201027670GPV

PATIENT
  Age: 68 Year
  Sex: Female
  Weight: 53 kg

DRUGS (9)
  1. FUROSEMIDE [Concomitant]
  2. KONAKION [Concomitant]
     Indication: COAGULOPATHY
     Dosage: DAILY DOSE 10 MG
     Route: 048
     Dates: start: 20100415
  3. SORAFENIB [Suspect]
     Indication: HEPATIC NEOPLASM MALIGNANT
     Route: 048
     Dates: start: 20100526, end: 20100531
  4. SPIRONOLACTONE [Concomitant]
  5. VITAMINA K [Concomitant]
     Dosage: 1 AMP/DAY
  6. OMEPRAZOLE [Concomitant]
  7. ALDACTONE [Concomitant]
     Indication: ASCITES
     Dosage: DAILY DOSE 100 MG
     Dates: start: 20100415
  8. CARBOHYDRATES/PROTEINS/MINERALS/VITAMINS, COM [Concomitant]
     Indication: PROTEIN TOTAL ABNORMAL
     Dosage: 500 ML/DAY
     Dates: start: 20100415
  9. FUROSEMIDE [Concomitant]
     Indication: ASCITES
     Dosage: DAILY DOSE 40 MG
     Route: 048

REACTIONS (5)
  - JAUNDICE [None]
  - ASTHENIA [None]
  - ACUTE HEPATIC FAILURE [None]
  - HEPATITIS FULMINANT [None]
  - FATIGUE [None]
